FAERS Safety Report 9721356 (Version 1)
Quarter: 2013Q4

REPORT INFORMATION
  Report Type: Spontaneous
  Country: US (occurrence: US)
  Receive Date: 20131129
  Receipt Date: 20131129
  Transmission Date: 20140711
  Serious: No
  Sender: FDA-Public Use
  Company Number: US-PFIZER INC-2013341470

PATIENT
  Age: 35 Year
  Sex: Male

DRUGS (5)
  1. QUILLIVANT XR [Suspect]
     Dosage: 20 MG, DAILY
  2. OMEPRAZOLE [Concomitant]
     Dosage: 20 MG, DAILY
  3. LEXAPRO [Concomitant]
     Dosage: 10 MG, DAILY
  4. LAMOTRIGINE [Concomitant]
     Dosage: 25 MG, 2X/DAY
  5. BUSPAR [Concomitant]
     Dosage: 10 MG, 2X/DAY

REACTIONS (1)
  - Rash generalised [Unknown]
